FAERS Safety Report 19820727 (Version 1)
Quarter: 2021Q3

REPORT INFORMATION
  Report Type: Spontaneous
  Country: ES (occurrence: ES)
  Receive Date: 20210913
  Receipt Date: 20210913
  Transmission Date: 20211014
  Serious: Yes (Hospitalization, Other)
  Sender: FDA-Public Use
  Company Number: ES-ASTELLAS-2021US033723

PATIENT
  Age: 10 Year
  Sex: Male

DRUGS (16)
  1. SIROLIMUS. [Suspect]
     Active Substance: SIROLIMUS
     Dosage: 0.2 MG, ONCE DAILY (AT HOSPITAL DAY + 51)
     Route: 065
  2. SIROLIMUS. [Suspect]
     Active Substance: SIROLIMUS
     Dosage: 0.2 MG, ONCE DAILY (AT HOSPITAL DAY + 6 MONTHS)
     Route: 065
  3. TACROLIMUS. [Interacting]
     Active Substance: TACROLIMUS
     Dosage: 0.6 MG, EVERY 12 HOURS (AT HOSPITAL DAY + 28)
     Route: 065
  4. TACROLIMUS. [Interacting]
     Active Substance: TACROLIMUS
     Dosage: 0.4 MG, EVERY 12 HOURS (AT HOSPITAL DAY + 6 MONTHS)
     Route: 065
  5. SIROLIMUS. [Suspect]
     Active Substance: SIROLIMUS
     Dosage: 0.6 MG, ONCE DAILY (AT HOSPITAL DAY + 28)
     Route: 065
  6. COTRIMOXAZOLE [Concomitant]
     Active Substance: SULFAMETHOXAZOLE\TRIMETHOPRIM
     Indication: PROPHYLAXIS
     Dosage: UNK UNK, UNKNOWN FREQ.
     Route: 065
  7. SIROLIMUS. [Suspect]
     Active Substance: SIROLIMUS
     Dosage: 0.8 MG, ONCE DAILY (AT HOSPITAL DAY + 25)
     Route: 065
  8. TACROLIMUS. [Interacting]
     Active Substance: TACROLIMUS
     Dosage: 0.8 MG, EVERY 12 HOURS (AT HOSPITAL DAY + 25)
     Route: 065
  9. SIROLIMUS. [Suspect]
     Active Substance: SIROLIMUS
     Indication: MULTIVISCERAL TRANSPLANTATION
     Dosage: 1.4 MG, ONCE DAILY ( AT HOSPITAL DAY + 0)
     Route: 065
  10. TACROLIMUS. [Interacting]
     Active Substance: TACROLIMUS
     Dosage: 0.4 MG, EVERY 12 HOURS (AT HOSPITAL DAY + 51)
     Route: 065
  11. SIROLIMUS. [Suspect]
     Active Substance: SIROLIMUS
     Dosage: 0.2 MG, ONCE DAILY (AT HOSPITAL DAY + 40)
     Route: 065
  12. TACROLIMUS. [Interacting]
     Active Substance: TACROLIMUS
     Dosage: 0.4 MG, EVERY 12 HOURS (AT HOSPITAL DAY + 40)
     Route: 065
  13. TACROLIMUS. [Suspect]
     Active Substance: TACROLIMUS
     Indication: MULTIVISCERAL TRANSPLANTATION
     Dosage: 1 MG, EVERY 12 HOURS (AT HOSPITAL DAY + 0)
     Route: 065
  14. VORICONAZOLE. [Interacting]
     Active Substance: VORICONAZOLE
     Indication: CRYPTOCOCCOSIS
     Dosage: 9 MG/KG, ONCE DAILY (AT HOSPITAL DAY + 25)
     Route: 048
  15. TACROLIMUS. [Interacting]
     Active Substance: TACROLIMUS
     Dosage: 0.4 MG, EVERY 12 HOURS (AT HOSPITAL DAY + 3 MONTHS)
     Route: 065
  16. SIROLIMUS. [Suspect]
     Active Substance: SIROLIMUS
     Dosage: 0.2 MG, ONCE DAILY (AT HOSPITAL DAY + 3 MONTHS)
     Route: 065

REACTIONS (6)
  - Cryptococcosis [Recovered/Resolved]
  - Cryptococcal fungaemia [Recovered/Resolved]
  - Drug interaction [Unknown]
  - Immunosuppressant drug level increased [Recovering/Resolving]
  - Pneumonia cryptococcal [Recovered/Resolved]
  - Blood creatinine increased [Recovered/Resolved]
